FAERS Safety Report 14572023 (Version 2)
Quarter: 2018Q2

REPORT INFORMATION
  Report Type: Report from Study
  Country: CA (occurrence: CA)
  Receive Date: 20180226
  Receipt Date: 20180403
  Transmission Date: 20180711
  Serious: Yes (Hospitalization, Other)
  Sender: FDA-Public Use
  Company Number: CA-GLAXOSMITHKLINE-CA2018GSK031301

PATIENT
  Age: 65 Year
  Sex: Female

DRUGS (1)
  1. SALBUTAMOL SULPHATE [Suspect]
     Active Substance: ALBUTEROL SULFATE
     Indication: PRODUCT USED FOR UNKNOWN INDICATION
     Dosage: UNK UNK, PRN

REACTIONS (13)
  - Gastric ulcer [Unknown]
  - Pericarditis [Unknown]
  - Chills [Unknown]
  - Type 2 diabetes mellitus [Unknown]
  - Postoperative ileus [Unknown]
  - Large intestine polyp [Unknown]
  - Cold sweat [Unknown]
  - Cortisol decreased [Unknown]
  - Abdominal adhesions [Unknown]
  - Pulmonary oedema [Unknown]
  - Sleep apnoea syndrome [Unknown]
  - Hypothyroidism [Unknown]
  - Anaemia [Unknown]

NARRATIVE: CASE EVENT DATE: 20180328
